FAERS Safety Report 11676081 (Version 1)
Quarter: 2015Q4

REPORT INFORMATION
  Report Type: Spontaneous
  Country: US (occurrence: US)
  Receive Date: 20151027
  Receipt Date: 20151027
  Transmission Date: 20160304
  Serious: No
  Sender: FDA-Public Use
  Company Number: US-ELI_LILLY_AND_COMPANY-US201008007860

PATIENT
  Sex: Female

DRUGS (2)
  1. FORTEO [Suspect]
     Active Substance: TERIPARATIDE
     Indication: BONE DENSITY INCREASED
     Dosage: 20 UG, DAILY (1/D)
     Route: 058
     Dates: start: 20091231
  2. FORTEO [Suspect]
     Active Substance: TERIPARATIDE
     Dosage: 20 UG, DAILY (1/D)
     Route: 058

REACTIONS (5)
  - Limb asymmetry [Unknown]
  - Musculoskeletal discomfort [Unknown]
  - Neck pain [Unknown]
  - Cervical spinal stenosis [Unknown]
  - Gait disturbance [Unknown]
